FAERS Safety Report 5142086-5 (Version None)
Quarter: 2006Q4

REPORT INFORMATION
  Report Type: 
  Country: None (occurrence: None)
  Receive Date: 20061027
  Receipt Date: 20061016
  Transmission Date: 20070319
  Serious: Yes (Hospitalization)
  Sender: FDA-Public Use
  Company Number: US-2006-001956

PATIENT
  Age: 73 Year
  Sex: Male
  Weight: 78 kg

DRUGS (9)
  1. REFLUDAN [Suspect]
     Indication: HEPARIN-INDUCED THROMBOCYTOPENIA
     Dates: start: 20050930
  2. ANGIOMAX [Suspect]
     Dosage: SEE IMAGE
     Dates: start: 20050920, end: 20050920
  3. ANGIOMAX [Suspect]
     Dosage: SEE IMAGE
     Dates: start: 20050920, end: 20050927
  4. ANGIOMAX [Suspect]
     Dosage: SEE IMAGE
     Dates: start: 20050930
  5. HEPARIN [Suspect]
     Indication: ATRIAL FIBRILLATION
     Dates: start: 20050927
  6. HEPARIN [Suspect]
     Indication: ATRIAL FIBRILLATION
     Dates: start: 20050930
  7. ASPIRIN [Suspect]
     Dosage: 325
  8. COUMADIN [Suspect]
     Dates: start: 20051001
  9. AMIODARONE HCL [Concomitant]

REACTIONS (8)
  - ATRIAL FIBRILLATION [None]
  - CARDIAC TAMPONADE [None]
  - HEPARIN-INDUCED THROMBOCYTOPENIA [None]
  - PERICARDIAL EFFUSION [None]
  - PLEURAL EFFUSION [None]
  - POST PROCEDURAL HAEMORRHAGE [None]
  - SURGICAL PROCEDURE REPEATED [None]
  - VENTRICULAR TACHYCARDIA [None]
